FAERS Safety Report 4497260-8 (Version None)
Quarter: 2004Q3

REPORT INFORMATION
  Report Type: 
  Country: None (occurrence: None)
  Receive Date: 20040927
  Receipt Date: 20040625
  Transmission Date: 20050211
  Serious: No
  Sender: FDA-Public Use
  Company Number: USA040671136

PATIENT
  Age: 33 Year
  Sex: Female
  Weight: 91 kg

DRUGS (7)
  1. STRATTERA [Suspect]
     Indication: DEPRESSION
     Dosage: 10 MG
  2. PROZAC [Suspect]
     Indication: DEPRESSION
  3. LAMICTAL [Concomitant]
  4. ABILIFY [Concomitant]
  5. ALLEGRA [Concomitant]
  6. MOBAN [Concomitant]
  7. ZONEGRAN [Concomitant]

REACTIONS (5)
  - DIARRHOEA [None]
  - DRUG INEFFECTIVE [None]
  - HORMONE LEVEL ABNORMAL [None]
  - MENSTRUAL DISORDER [None]
  - MENSTRUATION IRREGULAR [None]
